FAERS Safety Report 16420400 (Version 2)
Quarter: 2019Q3

REPORT INFORMATION
  Report Type: Spontaneous
  Country: US (occurrence: US)
  Receive Date: 20190612
  Receipt Date: 20190731
  Transmission Date: 20191004
  Serious: No
  Sender: FDA-Public Use
  Company Number: US-TEVA-2019-US-1057039

PATIENT
  Sex: Female

DRUGS (1)
  1. TOLTERODINE TARTRATE ER TEVA [Suspect]
     Active Substance: TOLTERODINE TARTRATE
     Indication: HYPERTONIC BLADDER
     Dosage: DOSE 4MG EXTENDED RELEASE
     Route: 065
     Dates: start: 20150802

REACTIONS (2)
  - Therapeutic product effect decreased [Unknown]
  - Product substitution issue [Unknown]
